FAERS Safety Report 12297453 (Version 2)
Quarter: 2016Q2

REPORT INFORMATION
  Report Type: Spontaneous
  Country: US (occurrence: US)
  Receive Date: 20160422
  Receipt Date: 20160616
  Transmission Date: 20160815
  Serious: No
  Sender: FDA-Public Use
  Company Number: US-TEVA-653642USA

PATIENT
  Age: 22 Year
  Sex: Female

DRUGS (7)
  1. ZOFRAN [Concomitant]
     Active Substance: ONDANSETRON HYDROCHLORIDE
     Dosage: AS NEEDED
  2. SUMATRIPTAN. [Concomitant]
     Active Substance: SUMATRIPTAN
     Route: 048
  3. AXERT [Concomitant]
     Active Substance: ALMOTRIPTAN MALATE
     Dosage: AS NEEDED
  4. TOPRAL [Concomitant]
     Active Substance: SULTOPRIDE HYDROCHLORIDE
  5. ZECUITY [Suspect]
     Active Substance: SUMATRIPTAN SUCCINATE
     Indication: MIGRAINE
     Dosage: 6.5MG/4HR
     Route: 062
     Dates: start: 20160324, end: 20160414
  6. BOTOX [Concomitant]
     Active Substance: ONABOTULINUMTOXINA
  7. FROVA [Concomitant]
     Active Substance: FROVATRIPTAN SUCCINATE

REACTIONS (3)
  - Skin irritation [Recovered/Resolved]
  - Application site erythema [Recovered/Resolved]
  - Application site dryness [Recovered/Resolved]

NARRATIVE: CASE EVENT DATE: 20160405
